FAERS Safety Report 6974023-2 (Version None)
Quarter: 2010Q3

REPORT INFORMATION
  Report Type: 
  Country: None (occurrence: None)
  Receive Date: 20100907
  Receipt Date: 20100827
  Transmission Date: 20110219
  Serious: Yes (Hospitalization)
  Sender: FDA-Public Use
  Company Number: 017874

PATIENT
  Sex: Female

DRUGS (17)
  1. XYZAL [Suspect]
     Dosage: (5 MG ORAL)
     Route: 048
     Dates: start: 20100302, end: 20100416
  2. ACUPAN (ACUPAN) (NOT SPECIFIED) [Concomitant]
     Dosage: (20 MG QID INTRAVENOUS (NOT OTHERWISE SPECIFIED))
     Route: 042
     Dates: start: 20091226, end: 20100416
  3. FORLAX (FORLAX) [Suspect]
     Dosage: (20 MG ORAL)
     Route: 048
     Dates: start: 20091226, end: 20100416
  4. ZOPHREN /00955302/ (ZOPHREN) [Suspect]
     Dosage: (4 MG TID ORAL)
     Route: 048
     Dates: start: 20091226, end: 20100329
  5. SULFARLEM S 25 (SULFARLEM) (NOT SPECIFIED) [Suspect]
     Dosage: (12.5 MG TID ORAL)
     Route: 048
     Dates: start: 20091226, end: 20100416
  6. CONTRAMAL (CONTRAMAL LP 100 MG) (NOT SPECIFIED) [Suspect]
     Dosage: (100 MG BID ORAL)
     Route: 048
     Dates: start: 20091226, end: 20100416
  7. CARBOSYLANE (CARBOSYLANE) (4 CAPSULES DAILY ORAL) [Suspect]
     Dosage: (4 CAPSULES DAILY ORAL)
     Route: 048
     Dates: start: 20091226, end: 20100416
  8. DOGMATIL (DOGMATIL) (NOT SPECIFIED) [Suspect]
     Dosage: (50 MG BID ORAL)
     Route: 048
     Dates: start: 20091226, end: 20100416
  9. LIBRAX [Suspect]
     Dosage: (1 TABLET DAILY ORAL)
     Route: 048
     Dates: start: 20091226, end: 20100416
  10. CERIS (CERIS 20 MG) (NOT SPECIFIED) [Suspect]
     Dosage: (20 MG BID ORAL)
     Route: 048
     Dates: start: 20100302, end: 20100416
  11. DOLIPRANE (DOLIPRANE) [Suspect]
     Dosage: (4 G ORAL)
     Route: 048
     Dates: start: 20100109, end: 20100416
  12. ANAFRANIL [Suspect]
     Dosage: (25 MG BID ORAL)
     Route: 048
     Dates: start: 20100224, end: 20100325
  13. EFFEXOR [Suspect]
     Dosage: (ORAL)
     Route: 048
     Dates: start: 20100331, end: 20100406
  14. MORPHINE [Concomitant]
  15. LOVENOX [Concomitant]
  16. INEXIUM /01479302/ [Concomitant]
  17. SECTRAL [Concomitant]

REACTIONS (3)
  - ALANINE AMINOTRANSFERASE INCREASED [None]
  - BLOOD ALKALINE PHOSPHATASE INCREASED [None]
  - GAMMA-GLUTAMYLTRANSFERASE INCREASED [None]
